FAERS Safety Report 12517889 (Version 1)
Quarter: 2016Q2

REPORT INFORMATION
  Report Type: Report from Study
  Country: BR (occurrence: BR)
  Receive Date: 20160630
  Receipt Date: 20160630
  Transmission Date: 20160815
  Serious: Yes (Other)
  Sender: FDA-Public Use
  Company Number: PHHY2016BR088853

PATIENT
  Sex: Female
  Weight: 75 kg

DRUGS (2)
  1. RITALIN LA [Suspect]
     Active Substance: METHYLPHENIDATE HYDROCHLORIDE
     Dosage: 20 MG, UNK
     Route: 048
  2. RITALIN LA [Suspect]
     Active Substance: METHYLPHENIDATE HYDROCHLORIDE
     Indication: DEPRESSION
     Dosage: 10 MG, QD
     Route: 048
     Dates: start: 201606

REACTIONS (12)
  - Pain [Recovered/Resolved]
  - Pyrexia [Recovered/Resolved]
  - Eye symptom [Recovered/Resolved]
  - Erythema [Recovered/Resolved]
  - Eye infection [Recovered/Resolved]
  - Pruritus [Recovered/Resolved]
  - Myalgia [Recovered/Resolved]
  - Ocular hyperaemia [Recovered/Resolved]
  - Product use issue [Recovered/Resolved]
  - Eye pain [Recovered/Resolved]
  - Drug hypersensitivity [Recovered/Resolved]
  - Eye burns [Recovered/Resolved]
